FAERS Safety Report 13797272 (Version 3)
Quarter: 2017Q3

REPORT INFORMATION
  Report Type: Spontaneous
  Country: US (occurrence: US)
  Receive Date: 20170727
  Receipt Date: 20170801
  Transmission Date: 20171127
  Serious: No
  Sender: FDA-Public Use
  Company Number: US-009507513-1707USA004990

PATIENT
  Sex: Female

DRUGS (5)
  1. ZEPATIER [Suspect]
     Active Substance: ELBASVIR\GRAZOPREVIR
     Indication: HEPATITIS C
     Dosage: ONE 50/100MG TABLET BY MOUTH EVERY DAY
     Route: 048
     Dates: start: 20170619
  2. SEROQUEL [Concomitant]
     Active Substance: QUETIAPINE FUMARATE
  3. AMLODIPINE BESYLATE. [Concomitant]
     Active Substance: AMLODIPINE BESYLATE
  4. AMBIEN [Concomitant]
     Active Substance: ZOLPIDEM TARTRATE
  5. ZEPATIER [Suspect]
     Active Substance: ELBASVIR\GRAZOPREVIR
     Dosage: ONE 50/100MG TABLET BY MOUTH EVERY DAY
     Route: 048
     Dates: start: 20170619

REACTIONS (1)
  - Insomnia [Unknown]

NARRATIVE: CASE EVENT DATE: 2017
